FAERS Safety Report 5963494-6 (Version None)
Quarter: 2008Q4

REPORT INFORMATION
  Report Type: 
  Country: None (occurrence: None)
  Receive Date: 20081124
  Receipt Date: 20081118
  Transmission Date: 20090506
  Serious: Yes (Death)
  Sender: FDA-Public Use
  Company Number: SG-BRISTOL-MYERS SQUIBB COMPANY-14410252

PATIENT
  Age: 48 Year
  Sex: Male

DRUGS (1)
  1. DASATINIB [Suspect]
     Indication: CHRONIC MYELOID LEUKAEMIA
     Dosage: 1 DF= 100 (NO UNITS SPECIFIED)
     Route: 048
     Dates: start: 20080703

REACTIONS (1)
  - CIRCULATORY COLLAPSE [None]
